FAERS Safety Report 8323062-8 (Version None)
Quarter: 2012Q2

REPORT INFORMATION
  Report Type: 
  Country: None (occurrence: None)
  Receive Date: 20120430
  Receipt Date: 20120416
  Transmission Date: 20120825
  Serious: Yes (Hospitalization, Disabling, Other)
  Sender: FDA-Public Use
  Company Number: US-MYLANLABS-2009AC000462

PATIENT
  Age: 63 Year
  Sex: Female
  Weight: 73.94 kg

DRUGS (35)
  1. DIGOXIN [Suspect]
     Indication: CHEST PAIN
     Route: 048
     Dates: start: 20060221
  2. EFFEXOR [Concomitant]
  3. BUSPAR [Concomitant]
  4. FLEXERIL [Concomitant]
  5. CELEBREX [Concomitant]
  6. CALCIUM CARBONATE [Concomitant]
  7. CIPRODEX /03061501/ [Concomitant]
  8. TRICOR [Concomitant]
  9. FISH OIL [Concomitant]
  10. IBUPROFEN [Concomitant]
  11. CUTIVATE [Concomitant]
  12. TYLENOL (CAPLET) [Concomitant]
  13. ANTIVERT [Concomitant]
  14. VICODIN [Concomitant]
  15. MERIDIA [Concomitant]
  16. IMDUR [Concomitant]
  17. ROBAXIN [Concomitant]
  18. VYTORIN [Concomitant]
  19. ASPIRIN [Concomitant]
  20. MULTI-VITAMIN [Concomitant]
  21. SYNTHROID [Concomitant]
  22. TYLENOL ARTHRITIS [Concomitant]
  23. GLUCOSAMINE [Concomitant]
  24. ATARAX [Concomitant]
  25. LIDEX [Concomitant]
  26. VALIUM [Concomitant]
  27. ULTRAM [Concomitant]
  28. ZOCOR [Concomitant]
  29. WELLBUTRIN [Concomitant]
  30. ZETIA [Concomitant]
  31. AVAPRO [Concomitant]
  32. FLONASE [Concomitant]
  33. CYTOMEL [Concomitant]
  34. ESTRACE [Concomitant]
  35. COLCHICINE [Concomitant]

REACTIONS (98)
  - CHEST PAIN [None]
  - MITRAL VALVE INCOMPETENCE [None]
  - CARDIAC VALVE DISEASE [None]
  - CERVICAL SPINE FLATTENING [None]
  - FIBROMYALGIA [None]
  - INTERVERTEBRAL DISC DISORDER [None]
  - SCOLIOSIS [None]
  - ECONOMIC PROBLEM [None]
  - HYPOTHYROIDISM [None]
  - SYSTEMIC LUPUS ERYTHEMATOSUS [None]
  - BACK PAIN [None]
  - DRY SKIN [None]
  - EAR PAIN [None]
  - OSTEOPENIA [None]
  - PAIN IN EXTREMITY [None]
  - OROPHARYNGEAL PAIN [None]
  - PHOTOPHOBIA [None]
  - SINUS BRADYCARDIA [None]
  - SKIN EXFOLIATION [None]
  - PALPITATIONS [None]
  - MITRAL VALVE PROLAPSE [None]
  - SINUS TACHYCARDIA [None]
  - AUTOIMMUNE THYROIDITIS [None]
  - ACTIVITIES OF DAILY LIVING IMPAIRED [None]
  - ASTHENIA [None]
  - BACK INJURY [None]
  - CONDITION AGGRAVATED [None]
  - DYSPNOEA EXERTIONAL [None]
  - ERYTHEMA [None]
  - MUSCLE STRAIN [None]
  - RASH PAPULAR [None]
  - TYMPANIC MEMBRANE PERFORATION [None]
  - ANXIETY DISORDER [None]
  - HYPERLIPIDAEMIA [None]
  - PAIN [None]
  - POLYMYOSITIS [None]
  - CHEST DISCOMFORT [None]
  - FLUID RETENTION [None]
  - HEADACHE [None]
  - PSORIASIS [None]
  - SLEEP DISORDER [None]
  - WEIGHT INCREASED [None]
  - ILL-DEFINED DISORDER [None]
  - ATRIAL FLUTTER [None]
  - HOSPITALISATION [None]
  - SUPRAVENTRICULAR TACHYCARDIA [None]
  - AFFECTIVE DISORDER [None]
  - ALOPECIA [None]
  - GRIEF REACTION [None]
  - CARPAL TUNNEL SYNDROME [None]
  - DIZZINESS [None]
  - EPISTAXIS [None]
  - FALL [None]
  - KYPHOSIS [None]
  - MUSCULOSKELETAL PAIN [None]
  - OBESITY [None]
  - RHINITIS ALLERGIC [None]
  - SCIATICA [None]
  - INJURY [None]
  - DISABILITY [None]
  - ADJUSTMENT DISORDER [None]
  - DIARRHOEA [None]
  - DRY EYE [None]
  - GOUT [None]
  - LIMB DISCOMFORT [None]
  - OSTEOARTHRITIS [None]
  - PARAESTHESIA [None]
  - POLYARTHRITIS [None]
  - SPINAL OSTEOARTHRITIS [None]
  - SUPRAVENTRICULAR EXTRASYSTOLES [None]
  - VOMITING [None]
  - DEPRESSION [None]
  - HYPERTENSION [None]
  - ABDOMINAL PAIN UPPER [None]
  - ANHEDONIA [None]
  - DYSPNOEA [None]
  - ECHOCARDIOGRAM ABNORMAL [None]
  - FATIGUE [None]
  - NAUSEA [None]
  - NODAL RHYTHM [None]
  - RADICULOPATHY [None]
  - SPINAL COLUMN STENOSIS [None]
  - HEART RATE IRREGULAR [None]
  - ARRHYTHMIA SUPRAVENTRICULAR [None]
  - ARTHRITIS [None]
  - CARDIAC MURMUR [None]
  - ARTHRALGIA [None]
  - ELECTROCARDIOGRAM ABNORMAL [None]
  - HYPERCHOLESTEROLAEMIA [None]
  - HYPERTROPHY [None]
  - LABORATORY TEST ABNORMAL [None]
  - MOUTH ULCERATION [None]
  - MYALGIA [None]
  - OEDEMA PERIPHERAL [None]
  - OTORRHOEA [None]
  - URTICARIA [None]
  - VISION BLURRED [None]
  - X-RAY ABNORMAL [None]
